FAERS Safety Report 26074456 (Version 1)
Quarter: 2025Q4

REPORT INFORMATION
  Report Type: Report from Study
  Country: EU (occurrence: EU)
  Receive Date: 20251121
  Receipt Date: 20251121
  Transmission Date: 20260117
  Serious: Yes (Hospitalization)
  Sender: ABBVIE
  Company Number: EU-ABBVIE-6557188

PATIENT
  Age: 79 Year
  Sex: Male

DRUGS (1)
  1. FOSCARBIDOPA\FOSLEVODOPA [Suspect]
     Active Substance: FOSCARBIDOPA\FOSLEVODOPA
     Indication: Product used for unknown indication
     Dosage: BASE 0.61ML/H, WEAK 0.30ML/H, HIGH 0.63ML/H, EXTRA DOSE: 0.3
     Route: 058
     Dates: start: 20251113

REACTIONS (2)
  - Appendicitis [Not Recovered/Not Resolved]
  - Peritonitis [Not Recovered/Not Resolved]

NARRATIVE: CASE EVENT DATE: 20251117
